FAERS Safety Report 18501732 (Version 1)
Quarter: 2020Q4

REPORT INFORMATION
  Report Type: Spontaneous
  Country: CN (occurrence: CN)
  Receive Date: 20201113
  Receipt Date: 20201113
  Transmission Date: 20210114
  Serious: Yes (Other)
  Sender: FDA-Public Use
  Company Number: CN-ASTRAZENECA-2020SF48700

PATIENT
  Age: 30859 Day
  Sex: Male
  Weight: 60 kg

DRUGS (2)
  1. PULMICORT RESPULES [Suspect]
     Active Substance: BUDESONIDE
     Indication: UPPER RESPIRATORY TRACT INFLAMMATION
     Route: 055
     Dates: start: 20201030, end: 20201030
  2. DAFENKECHUANG [Suspect]
     Active Substance: ALBUTEROL SULFATE
     Indication: TRACHEAL DISORDER
     Route: 055
     Dates: start: 20201030, end: 20201030

REACTIONS (2)
  - Heart rate increased [Recovering/Resolving]
  - Palpitations [Recovering/Resolving]

NARRATIVE: CASE EVENT DATE: 20201030
